FAERS Safety Report 22868874 (Version 2)
Quarter: 2024Q4

REPORT INFORMATION
  Report Type: Report from Study
  Country: US (occurrence: US)
  Receive Date: 20230825
  Receipt Date: 20241030
  Transmission Date: 20250114
  Serious: Yes (Hospitalization, Other)
  Sender: NOVARTIS
  Company Number: US-002147023-NVSC2023US184733

PATIENT
  Sex: Male
  Weight: 83.91 kg

DRUGS (2)
  1. ENTRESTO [Suspect]
     Active Substance: SACUBITRIL\VALSARTAN
     Indication: Myocardial infarction
     Dosage: 1 DOSAGE FORM, BID
     Route: 048
     Dates: start: 20230719
  2. ENTRESTO [Suspect]
     Active Substance: SACUBITRIL\VALSARTAN
     Dosage: UNK(24.26 MG)
     Route: 048
     Dates: start: 202308, end: 20230823

REACTIONS (6)
  - Angina pectoris [Unknown]
  - Product use in unapproved indication [Unknown]
  - Illness [Unknown]
  - Hypotension [Unknown]
  - Arterial occlusive disease [Unknown]
  - Back pain [Unknown]
